FAERS Safety Report 5356324-7 (Version None)
Quarter: 2007Q2

REPORT INFORMATION
  Report Type: 
  Country: None (occurrence: None)
  Receive Date: 20070530
  Receipt Date: 20061214
  Transmission Date: 20071010
  Serious: Yes (Hospitalization)
  Sender: FDA-Public Use
  Company Number: US200609003766

PATIENT
  Age: 53 Year
  Sex: Male
  Weight: 97.5 kg

DRUGS (1)
  1. ZYPREXA [Suspect]
     Indication: SCHIZOPHRENIA
     Dosage: 7.5 MG, ORAL
     Route: 048
     Dates: start: 19960101, end: 20050101

REACTIONS (2)
  - CHEST PAIN [None]
  - DIABETES MELLITUS [None]
